FAERS Safety Report 9292341 (Version 2)
Quarter: 2013Q2

REPORT INFORMATION
  Report Type: Spontaneous
  Country: US (occurrence: US)
  Receive Date: 20130516
  Receipt Date: 20130528
  Transmission Date: 20140414
  Serious: Yes (Other)
  Sender: FDA-Public Use
  Company Number: US-PFIZER INC-2013148576

PATIENT
  Age: 46 Year
  Sex: Male

DRUGS (1)
  1. LYRICA [Suspect]
     Dosage: 75 MG, 2X/DAY

REACTIONS (6)
  - Addison^s disease [Unknown]
  - Sepsis [Recovered/Resolved]
  - Pneumonia [Recovered/Resolved]
  - Diabetic eye disease [Unknown]
  - General physical health deterioration [Unknown]
  - Neuropathy peripheral [Unknown]
